FAERS Safety Report 8438170-0 (Version None)
Quarter: 2012Q2

REPORT INFORMATION
  Report Type: 
  Country: None (occurrence: None)
  Receive Date: 20120614
  Receipt Date: 20120608
  Transmission Date: 20120825
  Serious: Yes (Hospitalization)
  Sender: FDA-Public Use
  Company Number: FR-ROCHE-1077014

PATIENT
  Age: 71 Year
  Sex: Female

DRUGS (6)
  1. HERCEPTIN [Suspect]
     Indication: BREAST CANCER METASTATIC
     Dosage: 6 CYCLES OF WEEKLY
     Route: 042
     Dates: start: 20090320, end: 20090824
  2. HERCEPTIN [Suspect]
     Dosage: 38 CYCLES
     Dates: start: 20090421, end: 20120220
  3. LAPATINIB [Concomitant]
  4. SIMVASTATIN [Concomitant]
  5. HERCEPTIN [Suspect]
     Route: 042
     Dates: start: 20120319, end: 20120319
  6. TAXOL [Concomitant]
     Dates: start: 20090302, end: 20090824

REACTIONS (1)
  - LUNG DISORDER [None]
